FAERS Safety Report 11135532 (Version 1)
Quarter: 2015Q2

REPORT INFORMATION
  Report Type: Spontaneous
  Country: US (occurrence: None)
  Receive Date: 20150522
  Receipt Date: 20150522
  Transmission Date: 20150821
  Serious: Yes (Other)
  Sender: FDA-Public Use
  Company Number: None

PATIENT
  Age: 61 Year
  Sex: Female
  Weight: 81.19 kg

DRUGS (14)
  1. DOXYCYCLINE HYCLATE. [Concomitant]
     Active Substance: DOXYCYCLINE HYCLATE
  2. VITAMIN D [Concomitant]
     Active Substance: CHOLECALCIFEROL
  3. ESTRADIOL. [Concomitant]
     Active Substance: ESTRADIOL
  4. ADVAIR HFA [Concomitant]
     Active Substance: FLUTICASONE PROPIONATE\SALMETEROL XINAFOATE
  5. PEG 3350 [Suspect]
     Active Substance: POLYETHYLENE GLYCOL 3350
     Indication: BOWEL PREPARATION
     Dosage: 8 OZ GLASS OF SOLUTION EVERY 10 MINS
     Dates: start: 20150415, end: 20150416
  6. VOLTAREN (DICLOFENAC SODIUM GEL) [Concomitant]
  7. FLAXSEED [Concomitant]
     Active Substance: FLAX SEED
  8. MULTI-VITAMIN [Concomitant]
     Active Substance: .ALPHA.-TOCOPHEROL ACETATE, DL-\ASCORBIC ACID\CYANOCOBALAMIN\FLUORIDE ION\FOLIC ACID\NIACIN\PYRIDOXINE\RIBOFLAVIN\THIAMINE\VITAMIN A\VITAMIN D
  9. PEG 3350 [Suspect]
     Active Substance: POLYETHYLENE GLYCOL 3350
     Indication: COLONOSCOPY
     Dosage: 8 OZ GLASS OF SOLUTION EVERY 10 MINS
     Dates: start: 20150415, end: 20150416
  10. RESTASIS CYCLOSPORINE [Concomitant]
  11. PREDNISONE. [Concomitant]
     Active Substance: PREDNISONE
  12. VAGIFEM (ESTRADIOL) [Concomitant]
  13. CALCIUM [Concomitant]
     Active Substance: CALCIUM
  14. PROBIOTIC [Concomitant]
     Active Substance: PROBIOTICS NOS

REACTIONS (6)
  - Skin irritation [None]
  - Burning sensation [None]
  - Pain [None]
  - Defaecation urgency [None]
  - Faecal incontinence [None]
  - Drug effect increased [None]

NARRATIVE: CASE EVENT DATE: 20150415
